FAERS Safety Report 9075035 (Version 1)
Quarter: 2013Q1

REPORT INFORMATION
  Report Type: Report from Study
  Country: US (occurrence: US)
  Receive Date: 20130131
  Receipt Date: 20130131
  Transmission Date: 20140127
  Serious: No
  Sender: FDA-Public Use
  Company Number: US-ABBOTT-12P-163-1005359-00

PATIENT
  Sex: Female
  Weight: 74.91 kg

DRUGS (9)
  1. HUMIRA [Suspect]
     Indication: PSORIASIS
     Dates: start: 2012, end: 2012
  2. HUMIRA [Suspect]
     Dates: start: 2012, end: 201206
  3. METFORMIN HCL [Concomitant]
     Indication: DIABETES MELLITUS
  4. GLIMEPIRIDE [Concomitant]
     Indication: DIABETES MELLITUS
  5. ASPIRIN [Concomitant]
     Indication: FAMILIAL RISK FACTOR
  6. SIMVASTATIN [Concomitant]
     Indication: BLOOD CHOLESTEROL INCREASED
  7. LOSARTAN POSTASSIUM [Concomitant]
     Indication: HYPERTENSION
  8. OMEPRAZOLE [Concomitant]
     Indication: DYSPEPSIA
  9. FISH OIL [Concomitant]
     Indication: SUPPLEMENTATION THERAPY

REACTIONS (4)
  - Blood calcium increased [Unknown]
  - Lipoma [Not Recovered/Not Resolved]
  - Oedema peripheral [Not Recovered/Not Resolved]
  - Psoriasis [Not Recovered/Not Resolved]
